FAERS Safety Report 23539996 (Version 2)
Quarter: 2024Q1

REPORT INFORMATION
  Report Type: Spontaneous
  Country: FR (occurrence: FR)
  Receive Date: 20240219
  Receipt Date: 20240304
  Transmission Date: 20240410
  Serious: Yes (Death)
  Sender: FDA-Public Use
  Company Number: FR-ANIPHARMA-2024-FR-000036

PATIENT
  Age: 55 Year
  Sex: Male

DRUGS (8)
  1. CANDESARTAN CILEXETIL AND HYDROCHLOROTHIAZIDE [Suspect]
     Active Substance: CANDESARTAN CILEXETIL\HYDROCHLOROTHIAZIDE
     Indication: Hypertension
     Dosage: 1 DF DAILY
     Route: 048
     Dates: end: 20240122
  2. NAPROXEN [Suspect]
     Active Substance: NAPROXEN
     Dosage: 1100 MG DAILY
     Route: 048
     Dates: start: 20231130, end: 20231230
  3. KARDEGIC [Suspect]
     Active Substance: ASPIRIN DL-LYSINE
     Dosage: 1 DF DAILY
     Route: 048
     Dates: end: 20240122
  4. IBUPROFEN [Suspect]
     Active Substance: IBUPROFEN
     Route: 048
     Dates: start: 20240115, end: 20240122
  5. PRAVASTATIN SODIUM [Suspect]
     Active Substance: PRAVASTATIN SODIUM
     Dosage: 20 MG DAILY
     Route: 048
     Dates: end: 20240122
  6. METFORMIN HYDROCHLORIDE [Suspect]
     Active Substance: METFORMIN HYDROCHLORIDE
     Dosage: 2550 MG DAILY
     Route: 048
     Dates: end: 20240123
  7. HYDROCORTISONE [Suspect]
     Active Substance: HYDROCORTISONE
     Route: 065
     Dates: start: 20230921
  8. DICLOFENAC [Suspect]
     Active Substance: DICLOFENAC
     Route: 065

REACTIONS (3)
  - Lactic acidosis [Fatal]
  - Infection [Fatal]
  - Acute kidney injury [Fatal]

NARRATIVE: CASE EVENT DATE: 20240123
